FAERS Safety Report 7554592-4 (Version None)
Quarter: 2011Q2

REPORT INFORMATION
  Report Type: 
  Country: None (occurrence: None)
  Receive Date: 20110617
  Receipt Date: 20110613
  Transmission Date: 20111010
  Serious: Yes (Death, Other)
  Sender: FDA-Public Use
  Company Number: US-TEVA-286304USA

PATIENT

DRUGS (9)
  1. METHYLPREDNISOLONE [Suspect]
  2. RITUXIMAB [Suspect]
  3. DACLIXIMAB [Suspect]
  4. VINCRISTINE [Suspect]
  5. DOXORUBICIN HCL [Suspect]
  6. MYCOPHENOLIC ACID [Suspect]
     Dosage: 3000 MILLIGRAM;
     Route: 048
  7. ETOPOSIDE [Suspect]
  8. TACROLIMUS [Suspect]
  9. CAMPATH [Suspect]

REACTIONS (1)
  - ACANTHAMOEBA INFECTION [None]
